FAERS Safety Report 5975203-5 (Version None)
Quarter: 2008Q4

REPORT INFORMATION
  Report Type: 
  Country: None (occurrence: None)
  Receive Date: 20081202
  Receipt Date: 20081009
  Transmission Date: 20090506
  Serious: No
  Sender: FDA-Public Use
  Company Number: US-ABBOTT-08P-163-0480769-00

PATIENT
  Sex: Female
  Weight: 72.64 kg

DRUGS (1)
  1. LUPRON DEPOT [Suspect]
     Indication: ENDOMETRIOSIS
     Route: 030
     Dates: start: 20080822

REACTIONS (3)
  - ANXIETY [None]
  - MOOD ALTERED [None]
  - PANIC REACTION [None]
